FAERS Safety Report 9408556 (Version 2)
Quarter: 2013Q4

REPORT INFORMATION
  Report Type: Spontaneous
  Country: US (occurrence: None)
  Receive Date: 20130716
  Receipt Date: 20131008
  Transmission Date: 20140711
  Serious: Yes (Hospitalization)
  Sender: FDA-Public Use
  Company Number: JPI-P-033505

PATIENT
  Age: 78 Year
  Sex: Male
  Weight: 100 kg

DRUGS (7)
  1. XYREM [Suspect]
     Indication: NARCOLEPSY
     Dosage: 4.5 GM (2.25GM, 2 IN 1 D) ORAL
     Route: 048
     Dates: start: 20101103
  2. MODAFINIL (MODAFINIL) [Concomitant]
  3. LISINOPRIL/HYDROCHLOROTHIAZIDE (HYDROCHLOROTHIAZIDE LISINOPRIL) [Concomitant]
  4. PRAVASTATIN (PRAVASTATIN) [Concomitant]
  5. TERAZOSIN (TERAZOSIN) (TERAZOSIN) [Concomitant]
  6. VENLAFAXIN (VENLAFAXIN HYDROCHLORIDE) [Concomitant]
  7. PANTOPRAZOLE (PANTOPRAZOLE) [Concomitant]

REACTIONS (5)
  - Fatigue [None]
  - Limb injury [None]
  - Pain in extremity [None]
  - Cellulitis [None]
  - Fatigue [None]
